FAERS Safety Report 16254607 (Version 1)
Quarter: 2019Q2

REPORT INFORMATION
  Report Type: Report from Study
  Country: CN (occurrence: CN)
  Receive Date: 20190430
  Receipt Date: 20190430
  Transmission Date: 20190711
  Serious: Yes (Hospitalization, Other)
  Sender: FDA-Public Use
  Company Number: CN-ROCHE-1837107

PATIENT
  Sex: Female
  Weight: 58 kg

DRUGS (2)
  1. AVASTIN [Suspect]
     Active Substance: BEVACIZUMAB
     Indication: COLON CANCER METASTATIC
     Route: 041
     Dates: start: 20160722
  2. AVASTIN [Suspect]
     Active Substance: BEVACIZUMAB
     Indication: COLORECTAL CANCER

REACTIONS (12)
  - Haemorrhage [Unknown]
  - Drug resistance [Unknown]
  - Nasopharyngitis [Recovering/Resolving]
  - Thrombosis [Unknown]
  - Drug intolerance [Unknown]
  - Pyrexia [Unknown]
  - Jaundice [Unknown]
  - Vomiting [Unknown]
  - Device occlusion [Unknown]
  - Asthenia [Unknown]
  - Diarrhoea [Unknown]
  - General physical health deterioration [Unknown]
